FAERS Safety Report 10093628 (Version 1)
Quarter: 2014Q2

REPORT INFORMATION
  Report Type: Spontaneous
  Country: US (occurrence: US)
  Receive Date: 20140421
  Receipt Date: 20140421
  Transmission Date: 20141212
  Serious: No
  Sender: FDA-Public Use
  Company Number: US-SA-2014SA008435

PATIENT
  Age: 70 Year
  Sex: Female

DRUGS (3)
  1. ALLEGRA [Suspect]
     Indication: EYE PRURITUS
     Route: 048
     Dates: start: 20140118
  2. ALLEGRA [Suspect]
     Indication: SNEEZING
     Route: 048
     Dates: start: 20140118
  3. ATIVAN [Concomitant]

REACTIONS (3)
  - Abdominal discomfort [Not Recovered/Not Resolved]
  - Eye pruritus [Not Recovered/Not Resolved]
  - Sleep disorder [Not Recovered/Not Resolved]
